FAERS Safety Report 10159986 (Version 1)
Quarter: 2014Q2

REPORT INFORMATION
  Report Type: Spontaneous
  Country: US (occurrence: US)
  Receive Date: 20140508
  Receipt Date: 20140508
  Transmission Date: 20141212
  Serious: No
  Sender: FDA-Public Use
  Company Number: US-GLAXOSMITHKLINE-A1050271A

PATIENT
  Age: 69 Year
  Sex: Female

DRUGS (1)
  1. TYKERB [Suspect]
     Indication: BREAST CANCER
     Dosage: 250MG UNKNOWN
     Route: 065
     Dates: start: 20130928

REACTIONS (4)
  - Jaundice [Unknown]
  - Diarrhoea [Unknown]
  - Hospice care [Unknown]
  - Refusal of treatment by patient [Unknown]
